FAERS Safety Report 5809381-5 (Version None)
Quarter: 2008Q3

REPORT INFORMATION
  Report Type: 
  Country: None (occurrence: None)
  Receive Date: 20080714
  Receipt Date: 20080710
  Transmission Date: 20090109
  Serious: Yes (Death, Hospitalization)
  Sender: FDA-Public Use
  Company Number: PHBS2008TH05056

PATIENT
  Age: 27 Year
  Sex: Female

DRUGS (1)
  1. OXYTOCIN [Suspect]

REACTIONS (12)
  - ABORTION INDUCED [None]
  - ALPHA 1 FOETOPROTEIN DECREASED [None]
  - COMPUTERISED TOMOGRAM ABNORMAL [None]
  - DERMOID CYST [None]
  - DRUG EXPOSURE DURING PREGNANCY [None]
  - DRUG TOXICITY [None]
  - DYSPNOEA [None]
  - INTRA-UTERINE DEATH [None]
  - OVARIAN CYST [None]
  - PULMONARY FIBROSIS [None]
  - TUMOUR MARKER INCREASED [None]
  - UTERINE ENLARGEMENT [None]
